FAERS Safety Report 20130588 (Version 1)
Quarter: 2021Q4

REPORT INFORMATION
  Report Type: Spontaneous
  Country: ET (occurrence: ET)
  Receive Date: 20211130
  Receipt Date: 20211130
  Transmission Date: 20220303
  Serious: Yes (Life-Threatening)
  Sender: FDA-Public Use
  Company Number: ET-INNOCOLL PHARMACEUTICALS LIMITED-2021INN00006

PATIENT
  Age: 5 Year
  Sex: Male

DRUGS (1)
  1. BUPIVACAINE [Suspect]
     Active Substance: BUPIVACAINE
     Indication: Nerve block
     Dosage: 8 ML
     Route: 008

REACTIONS (1)
  - Anaesthetic complication [Recovered/Resolved]
